APPROVED DRUG PRODUCT: METOCLOPRAMIDE HYDROCHLORIDE
Active Ingredient: METOCLOPRAMIDE HYDROCHLORIDE
Strength: EQ 5MG BASE
Dosage Form/Route: TABLET;ORAL
Application: A071250 | Product #002
Applicant: IMPAX LABORATORIES INC
Approved: Dec 28, 1995 | RLD: No | RS: No | Type: DISCN